FAERS Safety Report 6095482-6 (Version None)
Quarter: 2009Q1

REPORT INFORMATION
  Report Type: 
  Country: None (occurrence: None)
  Receive Date: 20090227
  Receipt Date: 20080908
  Transmission Date: 20090719
  Serious: Yes (Other)
  Sender: FDA-Public Use
  Company Number: A0722142A

PATIENT
  Age: 53 Year
  Sex: Female

DRUGS (2)
  1. LAMICTAL [Suspect]
     Indication: EPILEPSY
     Dosage: 300MG PER DAY
     Route: 048
     Dates: start: 20030101
  2. TERAZOL 1 [Concomitant]

REACTIONS (4)
  - CONVULSION [None]
  - HEADACHE [None]
  - MYALGIA [None]
  - PRODUCT QUALITY ISSUE [None]
